FAERS Safety Report 6816261-5 (Version None)
Quarter: 2010Q3

REPORT INFORMATION
  Report Type: 
  Country: None (occurrence: None)
  Receive Date: 20100705
  Receipt Date: 20100628
  Transmission Date: 20110219
  Serious: Yes (Hospitalization)
  Sender: FDA-Public Use
  Company Number: NL-PFIZER INC-2006094799

PATIENT
  Age: 74 Year
  Sex: Male
  Weight: 77 kg

DRUGS (11)
  1. SUNITINIB MALATE [Suspect]
     Indication: RENAL CELL CARCINOMA
     Dosage: 50 MG, 1X/DAY, 4 OF 6 WEEK
     Route: 048
     Dates: start: 20060706, end: 20060724
  2. SUNITINIB MALATE [Suspect]
     Dosage: 37.5 MG, 1X/DAY, 4 OF 6 WEEK
     Route: 048
     Dates: start: 20060808, end: 20060816
  3. METOPROLOL TARTRATE [Concomitant]
     Dosage: UNK
     Route: 048
     Dates: start: 19900101
  4. ISOSORBIDE MONONITRATE [Concomitant]
     Dosage: UNK
     Route: 048
     Dates: start: 19900101
  5. CALCIUM CARBONATE [Concomitant]
     Dosage: UNK
     Route: 048
     Dates: start: 19900101
  6. ESOMEPRAZOLE MAGNESIUM [Concomitant]
     Dosage: UNK
     Route: 048
     Dates: start: 19900101
  7. PRAVASTATIN [Concomitant]
     Dosage: UNK
     Route: 048
     Dates: start: 19900101, end: 20060724
  8. OXAZEPAM [Concomitant]
     Dosage: UNK
     Route: 048
     Dates: start: 19920101
  9. NITROGLYCERIN [Concomitant]
     Dosage: UNK
     Route: 060
     Dates: start: 19900101
  10. SALMETEROL [Concomitant]
     Dosage: UNK
     Route: 065
     Dates: start: 20050101
  11. ACETAMINOPHEN [Concomitant]
     Dosage: UNK
     Route: 048
     Dates: start: 20060706

REACTIONS (3)
  - APATHY [None]
  - BRADYPHRENIA [None]
  - CONFUSIONAL STATE [None]
